FAERS Safety Report 5472165-4 (Version None)
Quarter: 2007Q3

REPORT INFORMATION
  Report Type: 
  Country: None (occurrence: None)
  Receive Date: 20070928
  Receipt Date: 20070903
  Transmission Date: 20080115
  Serious: Yes (Hospitalization)
  Sender: FDA-Public Use
  Company Number: GB-GENENTECH-248338

PATIENT
  Sex: Male
  Weight: 65.1 kg

DRUGS (4)
  1. BEVACIZUMAB [Suspect]
     Indication: COLON CANCER
     Dosage: 488 MG, Q3W
     Route: 042
     Dates: start: 20070704
  2. CAPECITABINE [Suspect]
     Indication: COLON CANCER
     Dosage: 1250 MG, BID
     Route: 048
     Dates: start: 20070704
  3. ATENOLOL [Concomitant]
     Indication: DRUG USE FOR UNKNOWN INDICATION
  4. SIMVASTATIN [Concomitant]
     Indication: DRUG USE FOR UNKNOWN INDICATION

REACTIONS (1)
  - PANCREATITIS [None]
